FAERS Safety Report 9980730 (Version 1)
Quarter: 2014Q1

REPORT INFORMATION
  Report Type: Spontaneous
  Country: BR (occurrence: BR)
  Receive Date: 20140307
  Receipt Date: 20140307
  Transmission Date: 20141002
  Serious: Yes (Other)
  Sender: FDA-Public Use
  Company Number: BR-JNJFOC-20140300690

PATIENT
  Sex: Male

DRUGS (3)
  1. INFLIXIMAB, RECOMBINANT [Suspect]
     Indication: PSORIASIS
     Route: 042
  2. INFLIXIMAB, RECOMBINANT [Suspect]
     Indication: PSORIASIS
     Route: 042
     Dates: start: 2011
  3. METHOTREXATE [Concomitant]
     Indication: PSORIASIS
     Route: 065

REACTIONS (5)
  - Drug effect decreased [Not Recovered/Not Resolved]
  - Tachycardia [Unknown]
  - Infusion related reaction [Unknown]
  - Pain [Unknown]
  - Headache [Unknown]
